FAERS Safety Report 8413830-6 (Version None)
Quarter: 2012Q2

REPORT INFORMATION
  Report Type: 
  Country: None (occurrence: None)
  Receive Date: 20120605
  Receipt Date: 20120528
  Transmission Date: 20120825
  Serious: Yes (Other)
  Sender: FDA-Public Use
  Company Number: US-JNJFOC-20120521103

PATIENT
  Age: 44 Year
  Sex: Female

DRUGS (9)
  1. DOXORUBICIN HCL [Suspect]
     Indication: OVARIAN CANCER
     Dosage: MAINTENANCE DOSE FOR A TOTAL CUMULATIVE DOSE OF 1.696 MG
     Route: 050
     Dates: end: 20100401
  2. TOPOTECAN [Suspect]
     Route: 065
     Dates: start: 20050829
  3. DOXORUBICIN HCL [Suspect]
     Dosage: 3 CYCLES GIVEN
     Route: 050
     Dates: start: 20070713, end: 20070914
  4. PACLITAXEL [Suspect]
     Indication: OVARIAN CANCER
     Dosage: X 3 DAYS FOR 4 CYCLES
     Route: 065
     Dates: start: 20070713, end: 20070914
  5. ABT-888 [Suspect]
     Indication: OVARIAN CANCER
     Route: 048
     Dates: start: 20100601, end: 20110401
  6. TOPOTECAN [Suspect]
     Indication: OVARIAN CANCER
     Dosage: FOR 4 CYCLES
     Route: 065
     Dates: start: 20050614, end: 20050802
  7. CYCLOPHOSPHAMIDE [Suspect]
     Indication: OVARIAN CANCER
     Route: 065
     Dates: start: 20100601, end: 20110401
  8. CARBOPLATIN [Suspect]
     Indication: OVARIAN CANCER
     Dosage: X 3 DAYS FOR 4 CYCLES
     Route: 065
     Dates: start: 20070713, end: 20070914
  9. CISPLATIN [Suspect]
     Indication: OVARIAN CANCER
     Dosage: X 3 DAYS FOR 4 CYCLES
     Route: 033
     Dates: start: 20050614, end: 20050810

REACTIONS (3)
  - CARBOHYDRATE ANTIGEN 125 INCREASED [None]
  - THROMBOCYTOPENIA [None]
  - SQUAMOUS CELL CARCINOMA [None]
